FAERS Safety Report 5972536-3 (Version None)
Quarter: 2008Q4

REPORT INFORMATION
  Report Type: 
  Country: None (occurrence: None)
  Receive Date: 20081201
  Receipt Date: 20081118
  Transmission Date: 20090506
  Serious: Yes (Hospitalization)
  Sender: FDA-Public Use
  Company Number: B0546818A

PATIENT
  Age: 61 Year
  Sex: Female

DRUGS (6)
  1. ZOPHREN [Suspect]
     Indication: CHEMOTHERAPY
     Dosage: 1AMP SINGLE DOSE
     Route: 042
     Dates: start: 20080820, end: 20080820
  2. CETUXIMAB [Suspect]
     Indication: INTESTINAL ADENOCARCINOMA
     Dosage: 650MG SINGLE DOSE
     Route: 042
     Dates: start: 20080820, end: 20080820
  3. CAMPTOSAR [Suspect]
     Indication: INTESTINAL ADENOCARCINOMA
     Dosage: 295MG SINGLE DOSE
     Route: 042
     Dates: start: 20080820, end: 20080820
  4. FOLINATE OF CALCIUM [Suspect]
     Indication: INTESTINAL ADENOCARCINOMA
     Dosage: 650MG SINGLE DOSE
     Route: 042
     Dates: start: 20080820, end: 20080820
  5. FLUOROURACIL [Suspect]
     Indication: INTESTINAL ADENOCARCINOMA
     Dosage: 650MG SINGLE DOSE
     Route: 040
     Dates: start: 20080820, end: 20080820
  6. POLARAMINE [Concomitant]
     Dosage: 1AMP SINGLE DOSE
     Dates: start: 20080820, end: 20080820

REACTIONS (5)
  - HEADACHE [None]
  - HYPERTENSION [None]
  - MYODESOPSIA [None]
  - VISUAL FIELD DEFECT [None]
  - VISUAL IMPAIRMENT [None]
